FAERS Safety Report 9742243 (Version 1)
Quarter: 2013Q4

REPORT INFORMATION
  Report Type: Spontaneous
  Country: GB (occurrence: GB)
  Receive Date: 20131210
  Receipt Date: 20131210
  Transmission Date: 20140711
  Serious: Yes (Hospitalization)
  Sender: FDA-Public Use
  Company Number: GB-MALLINCKRODT-T201305016

PATIENT
  Age: 56 Year
  Sex: Female
  Weight: 66.7 kg

DRUGS (2)
  1. TECHNESCAN HDP [Suspect]
     Indication: BONE SCAN
     Dosage: UNK
     Route: 042
     Dates: start: 20131129, end: 20131129
  2. TECHNETIUM TC 99M [Suspect]
     Indication: BONE SCAN
     Dosage: 400 MBQ, SINGLE
     Route: 042
     Dates: start: 20131129, end: 20131129

REACTIONS (1)
  - Epilepsy [Recovered/Resolved]
